FAERS Safety Report 8179706-7 (Version None)
Quarter: 2012Q1

REPORT INFORMATION
  Report Type: 
  Country: None (occurrence: None)
  Receive Date: 20120302
  Receipt Date: 20120221
  Transmission Date: 20120608
  Serious: Yes (Hospitalization)
  Sender: FDA-Public Use
  Company Number: CA-ELI_LILLY_AND_COMPANY-CA201201004378

PATIENT
  Sex: Female

DRUGS (22)
  1. RAMIPRIL [Concomitant]
  2. NITRODERM [Concomitant]
  3. ASPIRIN [Concomitant]
  4. FORTEO [Suspect]
     Indication: OSTEOPOROSIS
     Dosage: 20 UG, QD
     Route: 058
     Dates: start: 20111127
  5. OXYCONTIN [Concomitant]
  6. PANTOPRAZOLE [Concomitant]
  7. VITAMIN B-12 [Concomitant]
  8. CALCIUM [Concomitant]
  9. VITAMIN D [Concomitant]
  10. SYNTHROID [Concomitant]
  11. OXYCET [Concomitant]
  12. FORTEO [Suspect]
     Dosage: 20 UG, QD
     Route: 058
     Dates: end: 20120120
  13. ENBREL [Concomitant]
  14. CITALOPRAM HYDROBROMIDE [Concomitant]
  15. SENOKOT [Concomitant]
  16. ACTONEL [Concomitant]
  17. PREDNISONE TAB [Concomitant]
  18. AMLODIPINE [Concomitant]
  19. IRON [Concomitant]
  20. PANTOPRAZOLE SODIUM [Concomitant]
  21. ATENOLOL [Concomitant]
  22. ATORVASTATIN [Concomitant]

REACTIONS (4)
  - CYSTITIS [None]
  - BONE PAIN [None]
  - INGUINAL HERNIA REPAIR [None]
  - MUSCLE SPASMS [None]
